FAERS Safety Report 15932216 (Version 2)
Quarter: 2022Q4

REPORT INFORMATION
  Report Type: Spontaneous
  Country: US (occurrence: US)
  Receive Date: 20190207
  Receipt Date: 20221020
  Transmission Date: 20230113
  Serious: No
  Sender: FDA-Public Use
  Company Number: US-PFIZER INC-2019058301

PATIENT
  Age: 46 Year
  Sex: Female

DRUGS (1)
  1. XELJANZ [Suspect]
     Active Substance: TOFACITINIB CITRATE
     Indication: Rheumatoid arthritis
     Dosage: 5 MG, 2X/DAY(TAKE 1 TABLET BY MOUTH)
     Route: 048
     Dates: start: 20180101

REACTIONS (3)
  - Diarrhoea [Recovered/Resolved]
  - Respiratory symptom [Recovering/Resolving]
  - Condition aggravated [Recovering/Resolving]
